FAERS Safety Report 9970284 (Version 1)
Quarter: 2014Q1

REPORT INFORMATION
  Report Type: Spontaneous
  Country: US (occurrence: None)
  Receive Date: 20140304
  Receipt Date: 20140304
  Transmission Date: 20141002
  Serious: Yes (Other)
  Sender: FDA-Public Use
  Company Number: US-TORRENT-00000712

PATIENT
  Age: 44 Year
  Sex: Female

DRUGS (4)
  1. PANTOPRAZOLE (PANTOPRAZOLE) [Suspect]
     Dosage: 1 TABLET IN THE MORNING
  2. VIMPAT (LACOSAMIDE) [Concomitant]
  3. SERTRALINE (SERTRALINE HCL) [Concomitant]
  4. FELBAMATE (FELBAMATE) [Concomitant]

REACTIONS (3)
  - Convulsion [None]
  - Brain injury [None]
  - Communication disorder [None]
